FAERS Safety Report 25620117 (Version 2)
Quarter: 2025Q3

REPORT INFORMATION
  Report Type: Spontaneous
  Country: CN (occurrence: CN)
  Receive Date: 20250730
  Receipt Date: 20250819
  Transmission Date: 20251020
  Serious: Yes (Hospitalization)
  Sender: BIOGEN
  Company Number: CN-BIOGEN-2025BI01318463

PATIENT
  Age: 58 Year
  Sex: Male

DRUGS (1)
  1. QALSODY [Suspect]
     Active Substance: TOFERSEN
     Indication: Amyotrophic lateral sclerosis
     Route: 050
     Dates: start: 20250718

REACTIONS (1)
  - Orthostatic headache [Recovered/Resolved]

NARRATIVE: CASE EVENT DATE: 20250719
